FAERS Safety Report 17869263 (Version 2)
Quarter: 2020Q3

REPORT INFORMATION
  Report Type: Spontaneous
  Country: CA (occurrence: CA)
  Receive Date: 20200608
  Receipt Date: 20200717
  Transmission Date: 20201103
  Serious: Yes (Death, Hospitalization)
  Sender: FDA-Public Use
  Company Number: CA-ROCHE-2612977

PATIENT
  Age: 45 Year
  Sex: Male
  Weight: 59 kg

DRUGS (9)
  1. CALCIUM FOLINATE [Suspect]
     Active Substance: LEUCOVORIN CALCIUM
     Indication: COLORECTAL CANCER
     Route: 065
  2. BEVACIZUMAB. [Suspect]
     Active Substance: BEVACIZUMAB
     Indication: COLORECTAL CANCER
     Route: 065
  3. METHYLPREDNISOLONE. [Concomitant]
     Active Substance: METHYLPREDNISOLONE
     Indication: PREMEDICATION
     Route: 042
  4. FLUOROURACIL. [Suspect]
     Active Substance: FLUOROURACIL
     Indication: COLORECTAL CANCER
     Route: 065
  5. ACETAMINOPHEN. [Concomitant]
     Active Substance: ACETAMINOPHEN
     Indication: PREMEDICATION
     Route: 048
  6. VECTIBIX [Concomitant]
     Active Substance: PANITUMUMAB
  7. METHASTERONE. [Concomitant]
     Active Substance: METHASTERONE
  8. IRINOTECAN HYDROCHLORIDE. [Suspect]
     Active Substance: IRINOTECAN HYDROCHLORIDE
     Indication: COLORECTAL CANCER
     Route: 065
  9. DIPHENHYDRAMINE HYDROCHLORIDE. [Concomitant]
     Active Substance: DIPHENHYDRAMINE HYDROCHLORIDE
     Indication: PREMEDICATION
     Route: 048

REACTIONS (9)
  - Death [Fatal]
  - Incorrect dose administered [Fatal]
  - Haemoglobin decreased [Fatal]
  - Haematocrit decreased [Fatal]
  - Herpes zoster [Fatal]
  - Intestinal obstruction [Fatal]
  - Neoplasm progression [Fatal]
  - Mean platelet volume decreased [Fatal]
  - Red blood cell count decreased [Fatal]
